FAERS Safety Report 8191781-2 (Version None)
Quarter: 2012Q1

REPORT INFORMATION
  Report Type: 
  Country: None (occurrence: None)
  Receive Date: 20120307
  Receipt Date: 20120305
  Transmission Date: 20120608
  Serious: Yes (Death)
  Sender: FDA-Public Use
  Company Number: CHPA2012BR004370

PATIENT
  Sex: Female

DRUGS (2)
  1. COCAINE [Suspect]
     Dosage: UNK, UNK
  2. CIBALENA [Suspect]
     Dosage: UNK, UNK

REACTIONS (1)
  - DEATH [None]
